FAERS Safety Report 15262339 (Version 1)
Quarter: 2018Q3

REPORT INFORMATION
  Report Type: Spontaneous
  Country: US (occurrence: US)
  Receive Date: 20180809
  Receipt Date: 20180809
  Transmission Date: 20181010
  Serious: No
  Sender: FDA-Public Use
  Company Number: US-009507513-1807USA013214

PATIENT
  Age: 69 Year
  Sex: Female

DRUGS (6)
  1. SIMPONI [Concomitant]
     Active Substance: GOLIMUMAB
  2. DULERA [Suspect]
     Active Substance: FORMOTEROL FUMARATE DIHYDRATE\MOMETASONE FUROATE
     Indication: BRONCHIECTASIS
     Dosage: 2 PUFFS, TWICE DAILY
     Route: 055
     Dates: start: 201607
  3. OMEPRAZOLE. [Concomitant]
     Active Substance: OMEPRAZOLE
  4. FAMOTIDINE. [Concomitant]
     Active Substance: FAMOTIDINE
  5. ATORVASTATIN [Concomitant]
     Active Substance: ATORVASTATIN
  6. PROPAFENONE HYDROCHLORIDE. [Concomitant]
     Active Substance: PROPAFENONE HYDROCHLORIDE

REACTIONS (4)
  - Incorrect dose administered [Unknown]
  - Dysphonia [Not Recovered/Not Resolved]
  - Product quality issue [Not Recovered/Not Resolved]
  - Product use in unapproved indication [Unknown]

NARRATIVE: CASE EVENT DATE: 201607
